FAERS Safety Report 4555490-0 (Version None)
Quarter: 2005Q1

REPORT INFORMATION
  Report Type: 
  Country: None (occurrence: None)
  Receive Date: 20050118
  Receipt Date: 20050118
  Transmission Date: 20050727
  Serious: Yes (Hospitalization)
  Sender: FDA-Public Use
  Company Number: None

PATIENT
  Sex: Male
  Weight: 92 kg

DRUGS (9)
  1. FLUDARABINE [Suspect]
     Indication: ACUTE MYELOID LEUKAEMIA
     Dosage: 69MG DAILY IV
     Route: 042
     Dates: start: 20041019, end: 20041023
  2. FLUDARABINE [Suspect]
     Indication: STEM CELL TRANSPLANT
     Dosage: 69MG DAILY IV
     Route: 042
     Dates: start: 20041019, end: 20041023
  3. MELPHALAN [Suspect]
     Dosage: 320 MG ONCE
     Dates: start: 20041024
  4. CAMPATH [Suspect]
     Dosage: 20 MG QID I
     Dates: start: 20041019, end: 20041024
  5. PREDNISONE [Concomitant]
  6. VORICONAZOLE [Concomitant]
  7. PREVACID [Concomitant]
  8. COUMADIN [Concomitant]
  9. PROGRAF [Concomitant]

REACTIONS (2)
  - ATRIAL FIBRILLATION [None]
  - DYSPNOEA [None]
